FAERS Safety Report 4684192-5 (Version None)
Quarter: 2005Q2

REPORT INFORMATION
  Report Type: 
  Country: None (occurrence: None)
  Receive Date: 20050607
  Receipt Date: 20050527
  Transmission Date: 20051028
  Serious: Yes (Death, Congenital Anomaly)
  Sender: FDA-Public Use
  Company Number: 200511646FR

PATIENT

DRUGS (7)
  1. SALBUTAMOL [Suspect]
     Indication: DRUG USE FOR UNKNOWN INDICATION
  2. SINGULAIR [Suspect]
     Indication: DRUG USE FOR UNKNOWN INDICATION
  3. PNEUMOREL [Suspect]
     Indication: DRUG USE FOR UNKNOWN INDICATION
  4. FLUMUCIL [Suspect]
     Indication: DRUG USE FOR UNKNOWN INDICATION
  5. VIRLIX [Suspect]
     Indication: DRUG USE FOR UNKNOWN INDICATION
  6. ORELOX [Suspect]
     Indication: DRUG USE FOR UNKNOWN INDICATION
  7. CORTANCYL [Suspect]
     Indication: DRUG USE FOR UNKNOWN INDICATION
     Dosage: 1TAB UNKNOWN

REACTIONS (4)
  - ABORTION INDUCED [None]
  - ARNOLD-CHIARI MALFORMATION [None]
  - DRUG EXPOSURE DURING PREGNANCY [None]
  - SPINA BIFIDA [None]
